FAERS Safety Report 6052151-6 (Version None)
Quarter: 2009Q1

REPORT INFORMATION
  Report Type: 
  Country: None (occurrence: None)
  Receive Date: 20090126
  Receipt Date: 20090114
  Transmission Date: 20090719
  Serious: Yes (Other)
  Sender: FDA-Public Use
  Company Number: FR-ELI_LILLY_AND_COMPANY-FR200810006607

PATIENT
  Age: 31 Year
  Sex: Female
  Weight: 56 kg

DRUGS (3)
  1. CYMBALTA [Suspect]
     Indication: DEPRESSION
     Dosage: 60 MG, DAILY (1/D)
     Route: 048
     Dates: start: 20080301, end: 20081020
  2. LEXOMIL [Concomitant]
     Indication: ANXIETY
     Dosage: 6 MG, 3/D TO 4/D
     Route: 048
     Dates: start: 20080624
  3. ORAL CONTRACEPTIVE NOS [Concomitant]
     Indication: CONTRACEPTION
     Dosage: UNK, UNKNOWN
     Route: 048

REACTIONS (1)
  - HYPERTENSION [None]
